FAERS Safety Report 15888083 (Version 1)
Quarter: 2019Q1

REPORT INFORMATION
  Report Type: Spontaneous
  Country: US (occurrence: US)
  Receive Date: 20190108
  Receipt Date: 20190108
  Transmission Date: 20190417
  Serious: Yes (Other)
  Sender: FDA-Public Use
  Company Number: None

PATIENT
  Age: 52 Year
  Sex: Female

DRUGS (1)
  1. RITUXAN [Suspect]
     Active Substance: RITUXIMAB
     Indication: RHEUMATOID ARTHRITIS
     Dosage: ?          OTHER DOSE:827.32MG; ONCE WEEKLY ??-ONGOING  EVERY 6 MONTHS?
     Route: 042
     Dates: start: 20180109

REACTIONS (3)
  - Infusion related reaction [None]
  - Dyspnoea [None]
  - Gait disturbance [None]
